FAERS Safety Report 9210549 (Version 1)
Quarter: 2013Q2

REPORT INFORMATION
  Report Type: Spontaneous
  Country: US (occurrence: US)
  Receive Date: 20130404
  Receipt Date: 20130404
  Transmission Date: 20140414
  Serious: No
  Sender: FDA-Public Use
  Company Number: US-PFIZER INC-2013103767

PATIENT
  Sex: Male

DRUGS (3)
  1. VERAPAMIL HCL [Suspect]
     Dosage: 180 MG, UNK
  2. DIOVAN [Suspect]
     Dosage: 80 MG, UNK
  3. WARFARIN [Suspect]
     Dosage: 7.5 MG, UNK

REACTIONS (1)
  - Drug hypersensitivity [Unknown]
